FAERS Safety Report 10327522 (Version 3)
Quarter: 2014Q3

REPORT INFORMATION
  Report Type: Spontaneous
  Country: US (occurrence: US)
  Receive Date: 20140721
  Receipt Date: 20140808
  Transmission Date: 20150326
  Serious: Yes (Hospitalization, Other)
  Sender: FDA-Public Use
  Company Number: US-BEH-2013037211

PATIENT
  Age: 11 Year
  Sex: Female

DRUGS (1)
  1. HIZENTRA [Suspect]
     Active Substance: HUMAN IMMUNOGLOBULIN G
     Indication: HYPOGAMMAGLOBULINAEMIA
     Route: 058

REACTIONS (5)
  - Injection site erythema [Recovered/Resolved]
  - Infusion site swelling [Unknown]
  - Infusion site pain [Unknown]
  - Injection site necrosis [Recovered/Resolved]
  - Injection site vesicles [Recovered/Resolved]
